FAERS Safety Report 9760009 (Version 1)
Quarter: 2013Q4

REPORT INFORMATION
  Report Type: Spontaneous
  Country: US (occurrence: US)
  Receive Date: 20131216
  Receipt Date: 20131216
  Transmission Date: 20140711
  Serious: No
  Sender: FDA-Public Use
  Company Number: US-BIOGENIDEC-2013BI094165

PATIENT
  Sex: Female

DRUGS (10)
  1. TECFIDERA [Suspect]
     Indication: PRODUCT USED FOR UNKNOWN INDICATION
     Route: 048
     Dates: start: 20130821
  2. AMITRIPTYLINE HCI [Concomitant]
     Indication: PRODUCT USED FOR UNKNOWN INDICATION
  3. ECOTRIN LOW STRENGTH [Concomitant]
     Indication: PRODUCT USED FOR UNKNOWN INDICATION
  4. FLONASE [Concomitant]
     Indication: PRODUCT USED FOR UNKNOWN INDICATION
  5. HYDROCHLOROTHIAZIDE [Concomitant]
     Indication: PRODUCT USED FOR UNKNOWN INDICATION
  6. NITROFURANTOIN MACROCRYSTAL [Concomitant]
     Indication: PRODUCT USED FOR UNKNOWN INDICATION
  7. OXYBUTYNIN CHLORIDE [Concomitant]
     Indication: PRODUCT USED FOR UNKNOWN INDICATION
  8. PAXIL [Concomitant]
     Indication: PRODUCT USED FOR UNKNOWN INDICATION
  9. POTASSIMIN [Concomitant]
     Indication: PRODUCT USED FOR UNKNOWN INDICATION
  10. PROVIGIL [Concomitant]
     Indication: PRODUCT USED FOR UNKNOWN INDICATION

REACTIONS (2)
  - Headache [Unknown]
  - Diarrhoea [Unknown]
